FAERS Safety Report 18898598 (Version 2)
Quarter: 2021Q2

REPORT INFORMATION
  Report Type: Spontaneous
  Country: US (occurrence: US)
  Receive Date: 20210216
  Receipt Date: 20210625
  Transmission Date: 20210717
  Serious: Yes (Other)
  Sender: FDA-Public Use
  Company Number: US-GILEAD-2021-0515747

PATIENT
  Age: 56 Year
  Sex: Male
  Weight: 89.8 kg

DRUGS (52)
  1. VIREAD [Suspect]
     Active Substance: TENOFOVIR DISOPROXIL FUMARATE
     Dosage: UNK
     Route: 065
     Dates: start: 2002, end: 201708
  2. CEPHALEXIN [CEFALEXIN] [Concomitant]
     Active Substance: CEPHALEXIN
  3. DOXYCYCLINE HYCLATE. [Concomitant]
     Active Substance: DOXYCYCLINE HYCLATE
  4. NYSTATIN AND TRIAMCINOLONE [Concomitant]
     Active Substance: NYSTATIN\TRIAMCINOLONE ACETONIDE
  5. OMEPRAZOLE. [Concomitant]
     Active Substance: OMEPRAZOLE
  6. DESCOVY [Concomitant]
     Active Substance: EMTRICITABINE\TENOFOVIR ALAFENAMIDE FUMARATE
  7. ACYCLOVIR [ACICLOVIR] [Concomitant]
     Active Substance: ACYCLOVIR
  8. BUPROPION. [Concomitant]
     Active Substance: BUPROPION
  9. CARISOPRODOL. [Concomitant]
     Active Substance: CARISOPRODOL
  10. HYDROCORTISONE. [Concomitant]
     Active Substance: HYDROCORTISONE
  11. LEVOTHYROXINE. [Concomitant]
     Active Substance: LEVOTHYROXINE
  12. METOPROLOL TARTRATE. [Concomitant]
     Active Substance: METOPROLOL TARTRATE
  13. SILVER SULFADIAZINE. [Concomitant]
     Active Substance: SILVER SULFADIAZINE
  14. VENTOLIN [Concomitant]
     Active Substance: ALBUTEROL SULFATE
  15. VIREAD [Suspect]
     Active Substance: TENOFOVIR DISOPROXIL FUMARATE
     Dosage: UNK
     Route: 065
     Dates: start: 201709, end: 201801
  16. SUSTIVA [Concomitant]
     Active Substance: EFAVIRENZ
  17. TIVICAY [Concomitant]
     Active Substance: DOLUTEGRAVIR SODIUM
  18. ATORVASTATIN [Concomitant]
     Active Substance: ATORVASTATIN
  19. FLUCONAZOLE. [Concomitant]
     Active Substance: FLUCONAZOLE
  20. HYDROXYZINE [Concomitant]
     Active Substance: HYDROXYZINE HYDROCHLORIDE
  21. LINZESS [Concomitant]
     Active Substance: LINACLOTIDE
  22. NITROGLYCERIN. [Concomitant]
     Active Substance: NITROGLYCERIN
  23. PREDNISONE. [Concomitant]
     Active Substance: PREDNISONE
  24. BRILINTA [Concomitant]
     Active Substance: TICAGRELOR
  25. FUROSEMIDE. [Concomitant]
     Active Substance: FUROSEMIDE
  26. MINOCYCLINE [Concomitant]
     Active Substance: MINOCYCLINE HYDROCHLORIDE
  27. PRAZOSIN. [Concomitant]
     Active Substance: PRAZOSIN
  28. SULFAMETHOXAZOLE [Concomitant]
     Active Substance: SULFAMETHOXAZOLE
  29. LEXIVA [Concomitant]
     Active Substance: FOSAMPRENAVIR CALCIUM
  30. CLONAZEPAM. [Concomitant]
     Active Substance: CLONAZEPAM
  31. LINEZOLID. [Concomitant]
     Active Substance: LINEZOLID
  32. LISINOPRIL. [Concomitant]
     Active Substance: LISINOPRIL
  33. QVAR [Concomitant]
     Active Substance: BECLOMETHASONE DIPROPIONATE
  34. VIREAD [Suspect]
     Active Substance: TENOFOVIR DISOPROXIL FUMARATE
     Indication: HIV INFECTION
     Dosage: UNK
     Route: 048
     Dates: start: 2001
  35. COMBIVIR [Concomitant]
     Active Substance: LAMIVUDINE\ZIDOVUDINE
  36. NORVIR [Concomitant]
     Active Substance: RITONAVIR
  37. PROVENTIL HFA [SALBUTAMOL] [Concomitant]
  38. SPIRONOLACTONE. [Concomitant]
     Active Substance: SPIRONOLACTONE
  39. TRIAMCINOLONE [Concomitant]
     Active Substance: TRIAMCINOLONE
  40. ZERIT [Concomitant]
     Active Substance: STAVUDINE
  41. DOXEPIN [Concomitant]
     Active Substance: DOXEPIN
  42. HYDROXYZINE PAM [Concomitant]
     Active Substance: HYDROXYZINE PAMOATE
  43. MUPIROCIN. [Concomitant]
     Active Substance: MUPIROCIN
  44. OZEMPIC [Concomitant]
     Active Substance: SEMAGLUTIDE
  45. POTASSIUM [Concomitant]
     Active Substance: POTASSIUM
  46. PROAIR HFA [Concomitant]
     Active Substance: ALBUTEROL SULFATE
  47. SUPREP BOWEL PREP [Concomitant]
     Active Substance: MAGNESIUM SULFATE\POTASSIUM SULFATE\SODIUM SULFATE
  48. EPIVIR [Concomitant]
     Active Substance: LAMIVUDINE
  49. ALBUTEROL [SALBUTAMOL] [Concomitant]
     Active Substance: ALBUTEROL
  50. BETAMETHASONE VALERATE. [Concomitant]
     Active Substance: BETAMETHASONE VALERATE
  51. LACTULOSE. [Concomitant]
     Active Substance: LACTULOSE
  52. LAMIVUDINE. [Concomitant]
     Active Substance: LAMIVUDINE

REACTIONS (7)
  - Anxiety [Not Recovered/Not Resolved]
  - Musculoskeletal disorder [Unknown]
  - Osteoporosis [Not Recovered/Not Resolved]
  - Emotional distress [Not Recovered/Not Resolved]
  - Anhedonia [Not Recovered/Not Resolved]
  - Bone density decreased [Unknown]
  - Pain [Not Recovered/Not Resolved]

NARRATIVE: CASE EVENT DATE: 20170509
